FAERS Safety Report 7574845-3 (Version None)
Quarter: 2011Q2

REPORT INFORMATION
  Report Type: 
  Country: None (occurrence: None)
  Receive Date: 20110627
  Receipt Date: 20110614
  Transmission Date: 20111010
  Serious: Yes (Other)
  Sender: FDA-Public Use
  Company Number: SE-BAYER-2011-050793

PATIENT
  Age: 45 Year
  Sex: Female

DRUGS (3)
  1. COPAXONE [Concomitant]
     Indication: MULTIPLE SCLEROSIS
  2. CLARITIN [Concomitant]
  3. BETASERON [Suspect]
     Indication: MULTIPLE SCLEROSIS
     Dosage: UNK
     Dates: start: 20090801, end: 20110101

REACTIONS (4)
  - NAUSEA [None]
  - OCULAR ICTERUS [None]
  - LIVER DISORDER [None]
  - ABDOMINAL PAIN [None]
